FAERS Safety Report 7962003-X (Version None)
Quarter: 2011Q4

REPORT INFORMATION
  Report Type: 
  Country: None (occurrence: None)
  Receive Date: 20111207
  Receipt Date: 20111122
  Transmission Date: 20120403
  Serious: Yes (Hospitalization)
  Sender: FDA-Public Use
  Company Number: DE-ROCHE-1019077

PATIENT
  Sex: Female
  Weight: 112 kg

DRUGS (8)
  1. XELODA [Suspect]
     Indication: BREAST CANCER METASTATIC
     Dosage: DATE OF LAST DOSE PRIOR TO SAE:30/OCT/2011
     Route: 048
     Dates: start: 20100907
  2. BISOPROLOL [Concomitant]
  3. LEVOTHYROXINE SODIUM [Concomitant]
  4. AVASTIN [Suspect]
     Indication: BREAST CANCER METASTATIC
     Dosage: DATE IF LAST DOSE PRIOR TO SAE:30/OCT/2011
     Route: 042
     Dates: start: 20100907
  5. LISINOPRIL [Concomitant]
  6. PANTODAC [Concomitant]
     Dates: start: 20100920
  7. TILIDINE [Concomitant]
     Dates: end: 20110607
  8. TORSEMIDE [Concomitant]
     Dates: start: 20100920

REACTIONS (1)
  - RENAL DISORDER [None]
